FAERS Safety Report 8315194-5 (Version None)
Quarter: 2012Q2

REPORT INFORMATION
  Report Type: 
  Country: None (occurrence: None)
  Receive Date: 20120426
  Receipt Date: 20111219
  Transmission Date: 20120825
  Serious: Yes (Other)
  Sender: FDA-Public Use
  Company Number: DE-VIIV HEALTHCARE LIMITED-D0073870A

PATIENT
  Sex: Male
  Weight: 73 kg

DRUGS (6)
  1. REYATAZ [Suspect]
     Route: 065
  2. DARUNAVIR [Suspect]
     Indication: HIV INFECTION
     Dosage: 600MG TWICE PER DAY
     Route: 065
     Dates: start: 20111121
  3. MARAVIROC [Suspect]
     Indication: HIV INFECTION
     Dosage: 150MG TWICE PER DAY
     Route: 048
     Dates: start: 20111121
  4. NORVIR [Concomitant]
     Indication: HIV INFECTION
     Dosage: 100MG TWICE PER DAY
     Route: 065
     Dates: start: 20111121
  5. ABACAVIR SULFATE/LAMIVUDINE [Concomitant]
     Indication: HIV INFECTION
     Dosage: 900MG PER DAY
     Route: 065
     Dates: start: 20060606
  6. TRUVADA [Suspect]
     Indication: HIV INFECTION
     Route: 065

REACTIONS (4)
  - URINE OUTPUT INCREASED [None]
  - MICTURITION URGENCY [None]
  - SLEEP DISORDER [None]
  - LOBAR PNEUMONIA [None]
